FAERS Safety Report 24796140 (Version 2)
Quarter: 2025Q1

REPORT INFORMATION
  Report Type: Spontaneous
  Country: US (occurrence: US)
  Receive Date: 20250101
  Receipt Date: 20250124
  Transmission Date: 20250409
  Serious: No
  Sender: SANOFI AVENTIS
  Company Number: US-SA-2024SA384157

PATIENT
  Age: 70 Year
  Sex: Female

DRUGS (16)
  1. DUPIXENT [Suspect]
     Active Substance: DUPILUMAB
     Indication: Asthma
     Route: 058
     Dates: start: 20220324, end: 202411
  2. VITAMIN B12 [Concomitant]
     Active Substance: CYANOCOBALAMIN
  3. VITAMIN B12 [Concomitant]
     Active Substance: CYANOCOBALAMIN
  4. PREDNISONE [Concomitant]
     Active Substance: PREDNISONE
  5. VITAMIN D [Concomitant]
     Active Substance: VITAMIN D NOS
  6. FEXOFENADINE [Concomitant]
     Active Substance: FEXOFENADINE HYDROCHLORIDE
  7. VITAMIN D3 [Concomitant]
     Active Substance: CHOLECALCIFEROL
  8. ADVAIR HFA [Concomitant]
     Active Substance: FLUTICASONE PROPIONATE\SALMETEROL XINAFOATE
  9. CEPHALEXIN [Concomitant]
     Active Substance: CEPHALEXIN
  10. ESOMEPRAZOLE [Concomitant]
     Active Substance: ESOMEPRAZOLE
  11. REMICADE [Concomitant]
     Active Substance: INFLIXIMAB
  12. ALBUTEROL [Concomitant]
     Active Substance: ALBUTEROL
  13. ESTRADIOL [Concomitant]
     Active Substance: ESTRADIOL
  14. ROSUVASTATIN [Concomitant]
     Active Substance: ROSUVASTATIN
  15. KEPPRA [Concomitant]
     Active Substance: LEVETIRACETAM
  16. ALENDRONATE [Concomitant]
     Active Substance: ALENDRONATE SODIUM

REACTIONS (1)
  - Fall [Unknown]

NARRATIVE: CASE EVENT DATE: 20241101
